FAERS Safety Report 8548351-3 (Version None)
Quarter: 2012Q3

REPORT INFORMATION
  Report Type: 
  Country: None (occurrence: None)
  Receive Date: 20120717
  Receipt Date: 20120702
  Transmission Date: 20120928
  Serious: Yes (Death, Other)
  Sender: FDA-Public Use
  Company Number: 2012MA008167

PATIENT
  Age: 5 Year
  Sex: Male
  Weight: 29 kg

DRUGS (1)
  1. ACETAMINOPHEN AND CODEINE PHOSPHATE [Suspect]
     Indication: ADENOTONSILLECTOMY
     Dosage: 12 MG; Q4H;

REACTIONS (2)
  - RESPIRATORY DEPRESSION [None]
  - CYP2C19 POLYMORPHISM [None]
